FAERS Safety Report 22835119 (Version 2)
Quarter: 2023Q4

REPORT INFORMATION
  Report Type: Spontaneous
  Country: JP (occurrence: JP)
  Receive Date: 20230818
  Receipt Date: 20231023
  Transmission Date: 20240109
  Serious: Yes (Death)
  Sender: FDA-Public Use
  Company Number: JP-AMGEN-JPNSP2023143968

PATIENT

DRUGS (1)
  1. BLINCYTO [Suspect]
     Active Substance: BLINATUMOMAB
     Indication: Acute lymphocytic leukaemia
     Dosage: 5 MICROGRAM/SQ. METER, INTRAVENOUS DRIP INFUSION
     Route: 042
     Dates: start: 20230605, end: 20230702

REACTIONS (1)
  - Death [Fatal]
